FAERS Safety Report 5775515-4 (Version None)
Quarter: 2008Q2

REPORT INFORMATION
  Report Type: 
  Country: None (occurrence: None)
  Receive Date: 20080617
  Receipt Date: 20080611
  Transmission Date: 20081010
  Serious: Yes (Life-Threatening, Hospitalization)
  Sender: FDA-Public Use
  Company Number: JP-BRISTOL-MYERS SQUIBB COMPANY-14226922

PATIENT
  Age: 50 Year
  Sex: Female
  Weight: 56 kg

DRUGS (7)
  1. ABILIFY [Suspect]
     Indication: SCHIZOPHRENIA
     Dosage: 12MG QD 15NOV-28NOV07 14 DAY; 12MG BID 29NOV-12DEC07 14 DAY
     Route: 048
     Dates: start: 20071115
  2. BENZALIN [Concomitant]
     Dates: start: 20060208
  3. FLUNITRAZEPAM [Concomitant]
     Dates: start: 20060220
  4. WYPAX [Concomitant]
     Dates: start: 20061023
  5. RISPERDAL [Concomitant]
     Dates: start: 20061228
  6. HIRNAMIN [Concomitant]
     Dates: start: 20070118
  7. DEPAKENE [Concomitant]
     Dates: start: 20070205

REACTIONS (1)
  - WATER INTOXICATION [None]
